FAERS Safety Report 5890746-0 (Version None)
Quarter: 2008Q3

REPORT INFORMATION
  Report Type: 
  Country: None (occurrence: None)
  Receive Date: 20080922
  Receipt Date: 20080904
  Transmission Date: 20090109
  Serious: Yes (Other)
  Sender: FDA-Public Use
  Company Number: US-BAYER-200827194NA

PATIENT
  Age: 37 Year
  Sex: Female
  Weight: 70 kg

DRUGS (1)
  1. MIRENA [Suspect]
     Indication: CONTRACEPTION
     Route: 015
     Dates: start: 20050304, end: 20080708

REACTIONS (5)
  - ABORTION SPONTANEOUS [None]
  - ANTEPARTUM HAEMORRHAGE [None]
  - BLOOD HUMAN CHORIONIC GONADOTROPIN DECREASED [None]
  - IUCD COMPLICATION [None]
  - PREGNANCY WITH CONTRACEPTIVE DEVICE [None]
